FAERS Safety Report 5419230-5 (Version None)
Quarter: 2007Q3

REPORT INFORMATION
  Report Type: 
  Country: None (occurrence: None)
  Receive Date: 20070820
  Receipt Date: 20070807
  Transmission Date: 20080115
  Serious: Yes (Other)
  Sender: FDA-Public Use
  Company Number: CA-JNJFOC-20070801961

PATIENT
  Sex: Female
  Weight: 72 kg

DRUGS (18)
  1. REMICADE [Suspect]
     Route: 042
  2. REMICADE [Suspect]
     Route: 042
  3. REMICADE [Suspect]
     Route: 042
  4. REMICADE [Suspect]
     Route: 042
  5. REMICADE [Suspect]
     Route: 042
  6. REMICADE [Suspect]
     Indication: CROHN'S DISEASE
     Route: 042
  7. METHOTREXATE [Concomitant]
  8. TYLENOL [Concomitant]
  9. ASCORBIC ACID [Concomitant]
  10. VITAMIN D [Concomitant]
  11. FOLIC ACID [Concomitant]
  12. ZOPICLONE [Concomitant]
  13. SEROQUEL [Concomitant]
  14. OGEN [Concomitant]
  15. PANTOPRAZOLE SODIUM [Concomitant]
  16. CORTISONE ACETATE TAB [Concomitant]
  17. BENADRYL [Concomitant]
     Indication: PREMEDICATION
  18. SOLU-CORTEF [Concomitant]
     Indication: PREMEDICATION

REACTIONS (7)
  - ANAL SPHINCTER ATONY [None]
  - ARTHRALGIA [None]
  - BURNING SENSATION [None]
  - HOT FLUSH [None]
  - HYPOAESTHESIA [None]
  - OSTEOARTHRITIS [None]
  - TEMPERATURE INTOLERANCE [None]
